FAERS Safety Report 7715095-7 (Version None)
Quarter: 2011Q3

REPORT INFORMATION
  Report Type: 
  Country: None (occurrence: None)
  Receive Date: 20110822
  Receipt Date: 20110816
  Transmission Date: 20111222
  Serious: Yes (Other)
  Sender: FDA-Public Use
  Company Number: CL-338-2011

PATIENT
  Age: 73 Year
  Sex: Female

DRUGS (7)
  1. PEPPERMINT [Concomitant]
  2. VITAMIN B1 TAB [Concomitant]
  3. VITAMIN B-12 [Concomitant]
  4. LEVOTHYROXINE SODIUM [Concomitant]
  5. METRONIDAZOLE [Suspect]
     Indication: TOOTH ABSCESS
     Dosage: 200MG TDS ORAL
     Route: 048
     Dates: start: 20080604, end: 20080606
  6. METRONIDAZOLE [Suspect]
     Indication: TOOTH INFECTION
     Dosage: 200MG TDS ORAL
     Route: 048
     Dates: start: 20080604, end: 20080606
  7. CHROMIUM CHLORIDE [Concomitant]

REACTIONS (20)
  - CONFUSIONAL STATE [None]
  - HYPOGLYCAEMIA [None]
  - FATIGUE [None]
  - PANIC ATTACK [None]
  - COGNITIVE DISORDER [None]
  - DEPRESSION [None]
  - SHOCK [None]
  - WEIGHT DECREASED [None]
  - DIZZINESS [None]
  - HEADACHE [None]
  - SLEEP DISORDER [None]
  - NOCTURIA [None]
  - HYPOAESTHESIA [None]
  - RASH [None]
  - NIGHT SWEATS [None]
  - MUSCULAR WEAKNESS [None]
  - PARAESTHESIA [None]
  - DECREASED APPETITE [None]
  - ABDOMINAL PAIN UPPER [None]
  - LACRIMATION INCREASED [None]
